FAERS Safety Report 9839570 (Version 1)
Quarter: 2014Q1

REPORT INFORMATION
  Report Type: Report from Study
  Country: US (occurrence: US)
  Receive Date: 20140124
  Receipt Date: 20140124
  Transmission Date: 20141002
  Serious: Yes (Hospitalization, Other)
  Sender: FDA-Public Use
  Company Number: US-ROCHE-1326791

PATIENT
  Sex: Male
  Weight: 31.78 kg

DRUGS (21)
  1. PULMOZYME [Suspect]
     Indication: PNEUMONIA PSEUDOMONAL
     Route: 065
  2. PULMOZYME [Suspect]
     Indication: RESPIRATORY DISORDER
  3. PULMICORT [Concomitant]
  4. SINGULAIR [Concomitant]
  5. PREVACID [Concomitant]
  6. TOBI [Concomitant]
     Dosage: 300 MG/5ML NEB SOLUTION
     Route: 065
  7. CHOLESTIN [Concomitant]
  8. SPIRONOLACTONE [Concomitant]
     Route: 048
  9. TOPIRAMATE [Concomitant]
     Route: 048
  10. FELBAMATE [Concomitant]
     Route: 048
  11. HYDROCHLOROTHIAZIDE [Concomitant]
     Route: 048
  12. PREVACID [Concomitant]
     Route: 048
  13. PHOSPHA 250 NEUTRAL [Concomitant]
     Route: 048
  14. ZONISAMIDE [Concomitant]
     Route: 048
  15. CARAFATE [Concomitant]
     Dosage: 100 MG/ML
     Route: 048
  16. KLONOPIN [Concomitant]
     Route: 048
  17. METOCLOPRAMIDE [Concomitant]
     Dosage: 5 MG/ML
     Route: 048
  18. AMILORIDE [Concomitant]
     Route: 048
  19. PENICILLIN V POTASSIUM [Concomitant]
     Dosage: 250 MG/ML
     Route: 048
  20. XOPENEX HFA [Concomitant]
  21. TOPIRAMATE [Concomitant]
     Route: 048

REACTIONS (11)
  - Diarrhoea [Unknown]
  - Dehydration [Unknown]
  - Developmental delay [Unknown]
  - Crepitations [Unknown]
  - Rhonchi [Unknown]
  - Asthenia [Unknown]
  - Stridor [Unknown]
  - Electrolyte imbalance [Unknown]
  - Venous insufficiency [Unknown]
  - Unevaluable event [Recovered/Resolved]
  - Nasal septum deviation [Unknown]
